FAERS Safety Report 7740228-6 (Version None)
Quarter: 2011Q3

REPORT INFORMATION
  Report Type: 
  Country: None (occurrence: None)
  Receive Date: 20110909
  Receipt Date: 20110909
  Transmission Date: 20111222
  Serious: No
  Sender: FDA-Public Use
  Company Number: None

PATIENT
  Age: 23 Year
  Sex: Female
  Weight: 58.967 kg

DRUGS (2)
  1. MONTELUKAST SODIUM [Suspect]
     Indication: SCAR
     Dosage: 10MG
     Route: 048
     Dates: start: 20110902, end: 20110908
  2. LOESTRIN 24 FE [Concomitant]
     Route: 048

REACTIONS (1)
  - ORTHOSTATIC HYPOTENSION [None]
